FAERS Safety Report 9404910 (Version 2)
Quarter: 2013Q3

REPORT INFORMATION
  Report Type: Spontaneous
  Country: CA (occurrence: CA)
  Receive Date: 20130717
  Receipt Date: 20130822
  Transmission Date: 20140515
  Serious: Yes (Other)
  Sender: FDA-Public Use
  Company Number: CA-ASTRAZENECA-2013SE52165

PATIENT
  Age: 40 Year
  Sex: Female
  Weight: 82.4 kg

DRUGS (4)
  1. ZOLADEX LA [Suspect]
     Indication: BREAST CANCER FEMALE
     Route: 058
     Dates: start: 20130419
  2. HERCEPTIN [Suspect]
     Indication: BREAST CANCER FEMALE
     Route: 042
     Dates: start: 20121003
  3. FASLODEX [Concomitant]
     Indication: BREAST CANCER FEMALE
     Route: 058
     Dates: start: 20130419
  4. PAMIDRONATE [Concomitant]
     Indication: BREAST CANCER
     Dosage: 60 MG EVERY FIVE DAYS
     Route: 042
     Dates: start: 20121024

REACTIONS (4)
  - Dysphagia [Recovered/Resolved]
  - Chest discomfort [Recovered/Resolved]
  - Dry mouth [Recovered/Resolved]
  - Ear discomfort [Recovered/Resolved]
